FAERS Safety Report 16388009 (Version 1)
Quarter: 2019Q2

REPORT INFORMATION
  Report Type: Spontaneous
  Country: US (occurrence: US)
  Receive Date: 20190429
  Receipt Date: 20190429
  Transmission Date: 20190711
  Serious: Yes (Hospitalization)
  Sender: FDA-Public Use
  Company Number: None

PATIENT
  Age: 55 Year
  Sex: Male
  Weight: 87.41 kg

DRUGS (2)
  1. ROSUVASTATIN. [Suspect]
     Active Substance: ROSUVASTATIN
     Indication: HYPERLIPIDAEMIA
     Route: 048
     Dates: start: 20181123, end: 20190422
  2. ROSUVASTATIN. [Suspect]
     Active Substance: ROSUVASTATIN
     Indication: DIABETES MELLITUS
     Route: 048
     Dates: start: 20181123, end: 20190422

REACTIONS (14)
  - Inappropriate antidiuretic hormone secretion [None]
  - Ill-defined disorder [None]
  - Diarrhoea [None]
  - Gastrooesophageal reflux disease [None]
  - Essential hypertension [None]
  - Barrett^s oesophagus [None]
  - Renal tubular necrosis [None]
  - Acute kidney injury [None]
  - Pneumonia streptococcal [None]
  - Streptococcal sepsis [None]
  - Hypothyroidism [None]
  - Acquired oesophageal web [None]
  - Rhabdomyolysis [None]
  - Fibromyalgia [None]

NARRATIVE: CASE EVENT DATE: 20190409
